FAERS Safety Report 6541781-0 (Version None)
Quarter: 2010Q1

REPORT INFORMATION
  Report Type: 
  Country: None (occurrence: None)
  Receive Date: 20100119
  Receipt Date: 20100106
  Transmission Date: 20100710
  Serious: Yes (Other)
  Sender: FDA-Public Use
  Company Number: PHEH2009US14822

PATIENT
  Sex: Male
  Weight: 133.79 kg

DRUGS (2)
  1. RECLAST [Suspect]
     Indication: SENILE OSTEOPOROSIS
     Dosage: 5 MG/100ML, ONE DOSE
     Dates: start: 20091022, end: 20091022
  2. HUMALOG [Concomitant]
     Indication: DIABETES MELLITUS
     Dosage: 60-75 U, DAILY
     Route: 058

REACTIONS (1)
  - BLOOD GLUCOSE INCREASED [None]
